FAERS Safety Report 5478682-5 (Version None)
Quarter: 2007Q4

REPORT INFORMATION
  Report Type: 
  Country: None (occurrence: None)
  Receive Date: 20071005
  Receipt Date: 20070927
  Transmission Date: 20080405
  Serious: Yes (Hospitalization)
  Sender: FDA-Public Use
  Company Number: US-ABBOTT-07P-163-0419046-00

PATIENT
  Sex: Female
  Weight: 55.842 kg

DRUGS (5)
  1. HUMIRA [Suspect]
     Indication: RHEUMATOID ARTHRITIS
     Route: 058
     Dates: start: 20031201, end: 20061201
  2. HUMIRA [Suspect]
     Route: 058
     Dates: end: 20070701
  3. MELOXICAM [Concomitant]
     Indication: DRUG USE FOR UNKNOWN INDICATION
  4. AMIODARONE [Concomitant]
     Indication: DRUG USE FOR UNKNOWN INDICATION
  5. UNKNOWN MEDICATION [Concomitant]
     Indication: DRUG USE FOR UNKNOWN INDICATION

REACTIONS (5)
  - DRUG INEFFECTIVE [None]
  - FALL [None]
  - FEMUR FRACTURE [None]
  - PAIN [None]
  - SPINAL FRACTURE [None]
